FAERS Safety Report 8474750-4 (Version None)
Quarter: 2012Q2

REPORT INFORMATION
  Report Type: 
  Country: None (occurrence: None)
  Receive Date: 20120622
  Receipt Date: 20120612
  Transmission Date: 20120825
  Serious: Yes (Hospitalization)
  Sender: FDA-Public Use
  Company Number: WAES 1203USA03620

PATIENT
  Age: 15 Year
  Sex: Female

DRUGS (16)
  1. RIDAFOROLIMUS [Suspect]
     Indication: NEOPLASM
     Dosage: 30 MG/DAILY
     Route: 048
     Dates: start: 20120221, end: 20120224
  2. MEXIDEX (DEXAMETHASONE) [Concomitant]
  3. RADIANCE [Concomitant]
  4. LYCOPENE [Concomitant]
  5. SELENIUM (UNSPECIFIED) [Concomitant]
  6. BLACK CURRANT (+) TEA [Concomitant]
  7. WANUKA HONEY [Concomitant]
  8. FENTANYL [Concomitant]
  9. PHOTINIA PYRIFOLIA [Concomitant]
  10. ACYCLOVIR [Suspect]
     Indication: VIRAL INFECTION
     Dosage: 480 MG/TID
     Route: 042
     Dates: start: 20120328, end: 20120328
  11. BROCCOLI (+) CARROT [Concomitant]
  12. CYCLIZINE [Concomitant]
  13. LANSOPRAZOLE [Concomitant]
  14. MORPHINE SULFATE [Concomitant]
  15. BACLOFEN [Concomitant]
  16. TURMERIC [Concomitant]

REACTIONS (8)
  - FATIGUE [None]
  - ALANINE AMINOTRANSFERASE INCREASED [None]
  - HEADACHE [None]
  - PARTIAL SEIZURES [None]
  - PARAESTHESIA [None]
  - BLOOD SELENIUM INCREASED [None]
  - ASPARTATE AMINOTRANSFERASE INCREASED [None]
  - ORAL HERPES [None]
